FAERS Safety Report 8147220 (Version 4)
Quarter: 2013Q1

REPORT INFORMATION
  Report Type: Spontaneous
  Country: US (occurrence: US)
  Receive Date: 20110922
  Receipt Date: 20130227
  Transmission Date: 20140127
  Serious: No
  Sender: FDA-Public Use
  Company Number: US-BIOGENIDEC-2011BI035776

PATIENT
  Age: 54 None
  Sex: Female

DRUGS (1)
  1. TYSABRI [Suspect]
     Indication: MULTIPLE SCLEROSIS
     Route: 042
     Dates: start: 20101004

REACTIONS (13)
  - Swelling face [Recovered/Resolved]
  - Tooth fracture [Not Recovered/Not Resolved]
  - Sialoadenitis [Recovered/Resolved]
  - Dry mouth [Unknown]
  - Bone disorder [Unknown]
  - Toothache [Recovered/Resolved]
  - Gingival recession [Not Recovered/Not Resolved]
  - Gingival pain [Recovered/Resolved]
  - Gingival swelling [Recovered/Resolved]
  - Drug level increased [Unknown]
  - Bone density decreased [Unknown]
  - Dizziness [Recovered/Resolved]
  - Fatigue [Recovered/Resolved]
